FAERS Safety Report 4830409-3 (Version None)
Quarter: 2005Q4

REPORT INFORMATION
  Report Type: 
  Country: None (occurrence: None)
  Receive Date: 20051117
  Receipt Date: 20051003
  Transmission Date: 20060501
  Serious: Yes (Hospitalization)
  Sender: FDA-Public Use
  Company Number: GB-SANOFI-SYNTHELABO-F01200502019

PATIENT
  Sex: Male

DRUGS (10)
  1. OXALIPLATIN [Suspect]
     Indication: COLON CANCER
     Route: 042
     Dates: start: 20050720, end: 20050720
  2. FLUOROURACIL [Suspect]
     Route: 042
  3. LEUCOVORIN [Suspect]
     Route: 042
  4. BEVACIZUMAB [Suspect]
     Route: 042
  5. CLEXANE [Suspect]
     Dosage: UNK
     Route: 058
     Dates: start: 20050801, end: 20050814
  6. CLEXANE [Suspect]
     Route: 058
     Dates: start: 20050823
  7. WARFARIN [Concomitant]
     Dates: start: 20050719, end: 20050823
  8. ACETAMINOPHEN [Concomitant]
     Dosage: UNK
     Route: 065
     Dates: start: 20050819
  9. CODEINE [Concomitant]
     Dosage: UNK
     Route: 065
     Dates: start: 20050915, end: 20050919
  10. MORPHINE [Concomitant]
     Dosage: UNK
     Route: 065
     Dates: start: 20050919, end: 20050919

REACTIONS (4)
  - EMBOLISM [None]
  - LYMPHADENOPATHY [None]
  - NECK PAIN [None]
  - SHOULDER PAIN [None]
